FAERS Safety Report 9528937 (Version 1)
Quarter: 2013Q1

REPORT INFORMATION
  Report Type: Spontaneous
  Country: US (occurrence: None)
  Receive Date: 20130320
  Receipt Date: 20130320
  Transmission Date: 20140127
  Serious: Yes (Death, Other)
  Sender: FDA-Public Use
  Company Number: 075108

PATIENT
  Age: 50 Year
  Sex: Female

DRUGS (4)
  1. ALPRAZOLAM [Suspect]
     Dosage: TO NOT CONTINUING??
     Route: 048
  2. OXYCODONE [Suspect]
     Dosage: TO NOT CONTINUING?
     Route: 048
  3. TRAMADOL [Suspect]
     Dosage: TO NOT CONTINUING??
     Route: 048
  4. DIAZEPAM [Suspect]
     Dosage: TO NOT CONTINUING??
     Route: 048

REACTIONS (1)
  - Drug abuse [None]
